FAERS Safety Report 6493502-8 (Version None)
Quarter: 2009Q4

REPORT INFORMATION
  Report Type: 
  Country: None (occurrence: None)
  Receive Date: 20091214
  Receipt Date: 20091207
  Transmission Date: 20100525
  Serious: Yes (Death)
  Sender: FDA-Public Use
  Company Number: US-CELGENEUS-163-20785-09090508

PATIENT
  Sex: Female

DRUGS (3)
  1. THALOMID [Suspect]
     Indication: MELANOMA RECURRENT
     Route: 048
     Dates: start: 20090601
  2. THALOMID [Suspect]
     Route: 048
     Dates: start: 20090501
  3. TEMODAR [Concomitant]
     Indication: MELANOMA RECURRENT
     Route: 065

REACTIONS (3)
  - DEATH [None]
  - DISEASE PROGRESSION [None]
  - NO THERAPEUTIC RESPONSE [None]
